FAERS Safety Report 19050298 (Version 1)
Quarter: 2021Q1

REPORT INFORMATION
  Report Type: Spontaneous
  Country: US (occurrence: US)
  Receive Date: 20210323
  Receipt Date: 20210323
  Transmission Date: 20210420
  Serious: Yes (Life-Threatening, Other)
  Sender: FDA-Public Use
  Company Number: None

PATIENT
  Age: 45 Year
  Sex: Female
  Weight: 63.2 kg

DRUGS (1)
  1. CATHFLO ACTIVASE [Suspect]
     Active Substance: ALTEPLASE
     Indication: THROMBOSIS PROPHYLAXIS
     Dosage: ?          OTHER ROUTE:INTRACATHETER?
     Dates: start: 20210323, end: 20210323

REACTIONS (13)
  - Feeling hot [None]
  - Cyanosis [None]
  - Feeling cold [None]
  - Nausea [None]
  - Hypoaesthesia [None]
  - Erythema [None]
  - Blood pressure increased [None]
  - Pain in jaw [None]
  - Body temperature increased [None]
  - Urticaria [None]
  - Dizziness [None]
  - Dyspnoea [None]
  - Retching [None]

NARRATIVE: CASE EVENT DATE: 20210323
